FAERS Safety Report 20500179 (Version 1)
Quarter: 2022Q1

REPORT INFORMATION
  Report Type: Other
  Country: CA (occurrence: CA)
  Receive Date: 20220222
  Receipt Date: 20220222
  Transmission Date: 20220423
  Serious: Yes (Other)
  Sender: FDA-Public Use
  Company Number: CA-APOTEX-2022AP003348

PATIENT
  Age: 35 Year
  Sex: Female

DRUGS (4)
  1. DOMPERIDONE [Suspect]
     Active Substance: DOMPERIDONE
     Indication: Product used for unknown indication
     Dosage: UNK
     Route: 065
  2. FAMOTIDINE [Suspect]
     Active Substance: FAMOTIDINE
     Indication: Product used for unknown indication
     Dosage: UNK
     Route: 065
  3. PANTOPRAZOLE [Suspect]
     Active Substance: PANTOPRAZOLE
     Indication: Product used for unknown indication
     Dosage: UNK
     Route: 065
  4. PEMBROLIZUMAB [Suspect]
     Active Substance: PEMBROLIZUMAB
     Indication: Primary mediastinal large B-cell lymphoma recurrent
     Dosage: 200 MILLIGRAM, 1 EVERY 3 WEEKS
     Route: 065

REACTIONS (9)
  - Cough [Recovered/Resolved]
  - Dry skin [Recovered/Resolved]
  - Dyspnoea [Recovered/Resolved]
  - Faeces hard [Recovered/Resolved]
  - Neutropenia [Recovered/Resolved]
  - Pulmonary oedema [Recovered/Resolved]
  - Pyrexia [Recovered/Resolved]
  - Epigastric discomfort [Recovered/Resolved]
  - Diarrhoea [Recovered/Resolved]
